FAERS Safety Report 11359346 (Version 1)
Quarter: 2015Q3

REPORT INFORMATION
  Report Type: Spontaneous
  Country: BR (occurrence: BR)
  Receive Date: 20150807
  Receipt Date: 20150807
  Transmission Date: 20151125
  Serious: Yes (Death, Other)
  Sender: FDA-Public Use
  Company Number: BR-PFIZER INC-2015259675

PATIENT
  Age: 89 Year
  Sex: Male
  Weight: 42 kg

DRUGS (2)
  1. XALATAN [Suspect]
     Active Substance: LATANOPROST
     Indication: GLAUCOMA
     Dosage: 1 DROP IN THE LEFT EYE
     Route: 047
     Dates: start: 2012
  2. DRUSOLOL [Concomitant]
     Indication: GLAUCOMA
     Dosage: 1 DROP IN THE RIGHT EYE, UNSPECIFIED FREQUENCY
     Route: 047
     Dates: start: 2012, end: 201507

REACTIONS (3)
  - Malignant neoplasm progression [Fatal]
  - Laryngeal cancer [Fatal]
  - Pharyngeal cancer [Fatal]

NARRATIVE: CASE EVENT DATE: 201302
